FAERS Safety Report 15116474 (Version 2)
Quarter: 2018Q3

REPORT INFORMATION
  Report Type: Spontaneous
  Country: FR (occurrence: FR)
  Receive Date: 20180706
  Receipt Date: 20180821
  Transmission Date: 20181010
  Serious: Yes (Hospitalization)
  Sender: FDA-Public Use
  Company Number: FR-PFIZER INC-2018268064

PATIENT
  Age: 86 Year
  Sex: Female
  Weight: 75.8 kg

DRUGS (7)
  1. LASILIX /00032601/ [Suspect]
     Active Substance: FUROSEMIDE
     Indication: OEDEMA PERIPHERAL
     Dosage: 40 MG, 1X/DAY, ON THE MORNING
     Route: 048
     Dates: start: 201804, end: 20180530
  2. COUMADINE [Concomitant]
     Active Substance: WARFARIN SODIUM
  3. FLECAINE [Concomitant]
     Active Substance: FLECAINIDE
  4. FORLAX [Concomitant]
     Active Substance: POLYETHYLENE GLYCOL 4000
  5. APROVEL [Concomitant]
     Active Substance: IRBESARTAN
     Indication: HYPERTENSION
     Dosage: 150 MG, 1X/DAY
     Route: 048
     Dates: end: 20180530
  6. LEVOTHYROX [Concomitant]
     Active Substance: LEVOTHYROXINE
  7. ALDACTONE [Suspect]
     Active Substance: SPIRONOLACTONE
     Indication: OEDEMA PERIPHERAL
     Dosage: 12.5 MG, 1X/DAY/IN THE MORNING
     Route: 048
     Dates: start: 201804, end: 20180530

REACTIONS (3)
  - General physical health deterioration [Recovering/Resolving]
  - Weight decreased [Recovering/Resolving]
  - Acute kidney injury [Recovering/Resolving]

NARRATIVE: CASE EVENT DATE: 201805
